FAERS Safety Report 6287407-5 (Version None)
Quarter: 2009Q3

REPORT INFORMATION
  Report Type: 
  Country: None (occurrence: None)
  Receive Date: 20090727
  Receipt Date: 20090714
  Transmission Date: 20100115
  Serious: Yes (Other)
  Sender: FDA-Public Use
  Company Number: 2009-02901

PATIENT
  Age: 79 Year
  Sex: Female

DRUGS (2)
  1. VELCADE [Suspect]
     Indication: MULTIPLE MYELOMA
     Dates: start: 20090701
  2. ROSIGLITAZONE [Concomitant]

REACTIONS (4)
  - CHEST X-RAY ABNORMAL [None]
  - GENERALISED OEDEMA [None]
  - HYDROTHORAX [None]
  - PULMONARY HYPERTENSION [None]
